FAERS Safety Report 12383175 (Version 2)
Quarter: 2016Q3

REPORT INFORMATION
  Report Type: Spontaneous
  Country: US (occurrence: US)
  Receive Date: 20160518
  Receipt Date: 20160705
  Transmission Date: 20161109
  Serious: No
  Sender: FDA-Public Use
  Company Number: US-PFIZER INC-2016260344

PATIENT
  Age: 54 Year
  Sex: Female

DRUGS (1)
  1. METHOTREXATE SODIUM. [Suspect]
     Active Substance: METHOTREXATE SODIUM
     Indication: RHEUMATOID ARTHRITIS
     Dosage: 15 MG, WEEKLY (6 PILLS X2.5/WEEK)
     Route: 048
     Dates: start: 20141023

REACTIONS (6)
  - Peripheral swelling [Unknown]
  - Musculoskeletal stiffness [Unknown]
  - Oropharyngeal pain [Unknown]
  - Drug effect incomplete [Unknown]
  - Pain in extremity [Unknown]
  - Folliculitis [Unknown]

NARRATIVE: CASE EVENT DATE: 201604
